FAERS Safety Report 7078632-4 (Version None)
Quarter: 2010Q4

REPORT INFORMATION
  Report Type: 
  Country: None (occurrence: None)
  Receive Date: 20101102
  Receipt Date: 20101029
  Transmission Date: 20110411
  Serious: No
  Sender: FDA-Public Use
  Company Number: US-TEVA-253480USA

PATIENT
  Age: 60 Year
  Sex: Male

DRUGS (1)
  1. ALBUTEROL SULFATE AUTOHALER [Suspect]
     Indication: LUNG DISORDER
     Route: 055
     Dates: start: 20101027

REACTIONS (1)
  - DRUG EFFECT DECREASED [None]
